FAERS Safety Report 7153101-1 (Version None)
Quarter: 2010Q4

REPORT INFORMATION
  Report Type: 
  Country: None (occurrence: None)
  Receive Date: 20101209
  Receipt Date: 20101209
  Transmission Date: 20110411
  Serious: Yes (Life-Threatening)
  Sender: FDA-Public Use
  Company Number: None

PATIENT
  Sex: Male
  Weight: 117.9352 kg

DRUGS (1)
  1. LOSARTAN POTASSIUM 100 MG TAB [Suspect]
     Indication: HYPERTENSION
     Dosage: 100 MG ONE QD PO
     Route: 048

REACTIONS (3)
  - BLOOD PRESSURE INCREASED [None]
  - DRUG INEFFECTIVE [None]
  - PRODUCT SUBSTITUTION ISSUE [None]
